FAERS Safety Report 5454196-3 (Version None)
Quarter: 2007Q3

REPORT INFORMATION
  Report Type: 
  Country: None (occurrence: None)
  Receive Date: 20070917
  Receipt Date: 20070912
  Transmission Date: 20080115
  Serious: Yes (Other)
  Sender: FDA-Public Use
  Company Number: GB-SHR-GB-2007-033297

PATIENT
  Age: 78 Year
  Sex: Female

DRUGS (4)
  1. FLUDARABINE PHOSPHATE [Suspect]
     Dosage: UNK, 4 CYCLES
  2. CYCLOPHOSPHAMIDE [Suspect]
     Dosage: UNK, 4 CYCLES
  3. CO-TRIMOXAZOLE [Concomitant]
     Dosage: 960 MG, 2X/DAY, 3DAYS/WEEK
  4. AMITRIPTYLINE HCL [Concomitant]

REACTIONS (5)
  - AUTOIMMUNE DISORDER [None]
  - GRANULOCYTES MATURATION ARREST [None]
  - LEUKOPENIA [None]
  - NEUTROPENIC SEPSIS [None]
  - RENAL IMPAIRMENT [None]
